FAERS Safety Report 10441422 (Version 1)
Quarter: 2014Q3

REPORT INFORMATION
  Report Type: Spontaneous
  Country: US (occurrence: None)
  Receive Date: 20140908
  Receipt Date: 20140908
  Transmission Date: 20150326
  Serious: Yes (Hospitalization, Disabling)
  Sender: FDA-Public Use
  Company Number: None

PATIENT
  Age: 78 Year
  Sex: Female

DRUGS (9)
  1. VITAMIN D3 [Concomitant]
     Active Substance: CHOLECALCIFEROL
  2. VIT B6 [Concomitant]
  3. FOLIC ACID. [Concomitant]
     Active Substance: FOLIC ACID
  4. VITAMIN B12 [Concomitant]
     Active Substance: CYANOCOBALAMIN
  5. DICLOFENAC SOD [Suspect]
     Active Substance: DICLOFENAC SODIUM
     Indication: PROCEDURAL PAIN
     Route: 048
     Dates: start: 20140804, end: 20140807
  6. LISINOPRIL. [Concomitant]
     Active Substance: LISINOPRIL
  7. CALCIUM CALTRATE [Concomitant]
     Active Substance: CALCIUM
  8. FOSAMAX [Concomitant]
     Active Substance: ALENDRONATE SODIUM
  9. SYNTHROID [Concomitant]
     Active Substance: LEVOTHYROXINE SODIUM

REACTIONS (7)
  - Gastric disorder [None]
  - Diarrhoea [None]
  - Abdominal pain upper [None]
  - Haemorrhage [None]
  - Blood magnesium decreased [None]
  - Abdominal pain [None]
  - Blood potassium decreased [None]

NARRATIVE: CASE EVENT DATE: 20140807
